FAERS Safety Report 9153124 (Version 1)
Quarter: 2013Q1

REPORT INFORMATION
  Report Type: Spontaneous
  Country: DE (occurrence: DE)
  Receive Date: 20130311
  Receipt Date: 20130311
  Transmission Date: 20140127
  Serious: Yes (Other)
  Sender: FDA-Public Use
  Company Number: DE-AMGEN-DEUSP2013016297

PATIENT
  Age: 85 Year
  Sex: Female

DRUGS (2)
  1. ENBREL [Suspect]
     Indication: PRODUCT USED FOR UNKNOWN INDICATION
     Dosage: 25 MG, UNK
  2. AVASTIN                            /01555201/ [Concomitant]
     Indication: EYE HAEMORRHAGE
     Dosage: UNK

REACTIONS (6)
  - Haemorrhage [Unknown]
  - Pain in extremity [Unknown]
  - Weight decreased [Unknown]
  - Pruritus generalised [Unknown]
  - Needle issue [Unknown]
  - Injection site pain [Unknown]
